FAERS Safety Report 25362394 (Version 1)
Quarter: 2025Q2

REPORT INFORMATION
  Report Type: Spontaneous
  Country: US (occurrence: US)
  Receive Date: 20250527
  Receipt Date: 20250527
  Transmission Date: 20250716
  Serious: No
  Sender: VIIV
  Company Number: US-VIIV HEALTHCARE-US2025059258

PATIENT
  Sex: Male

DRUGS (1)
  1. VOCABRIA [Interacting]
     Active Substance: CABOTEGRAVIR SODIUM
     Indication: Prophylaxis against HIV infection
     Route: 048

REACTIONS (1)
  - Labelled drug-drug interaction medication error [Unknown]
